FAERS Safety Report 8879672 (Version 5)
Quarter: 2013Q1

REPORT INFORMATION
  Report Type: Spontaneous
  Country: JP (occurrence: JP)
  Receive Date: 20121101
  Receipt Date: 20130108
  Transmission Date: 20140127
  Serious: Yes (Hospitalization)
  Sender: FDA-Public Use
  Company Number: JP-009507513-1210JPN014193

PATIENT
  Age: 74 Year
  Sex: Female

DRUGS (6)
  1. BONALON [Suspect]
     Indication: OSTEOPOROSIS
     Dosage: 35 MG, QW
     Route: 048
     Dates: start: 200503, end: 201203
  2. ONEALFA [Concomitant]
     Indication: OSTEOPOROSIS
     Dosage: 1 MICROGRAM, QD
     Route: 048
  3. METHYCOBAL [Concomitant]
  4. PEON [Concomitant]
     Dosage: 9 DF, QD
     Route: 048
  5. OPALMON [Concomitant]
     Dosage: 15 MICROGRAM, QD
     Route: 048
  6. MOHRUS [Concomitant]
     Dosage: 20 MG, QD

REACTIONS (2)
  - Atypical femur fracture [Recovered/Resolved]
  - Atypical femur fracture [Not Recovered/Not Resolved]
